FAERS Safety Report 9443301 (Version 1)
Quarter: 2013Q3

REPORT INFORMATION
  Report Type: Spontaneous
  Country: FR (occurrence: FR)
  Receive Date: 20130806
  Receipt Date: 20130806
  Transmission Date: 20140515
  Serious: Yes (Other)
  Sender: FDA-Public Use
  Company Number: FR-BAYER-2012-112633

PATIENT
  Age: 39 Year
  Sex: Female
  Weight: 70 kg

DRUGS (1)
  1. MIRENA [Suspect]
     Dosage: 20 MCG/24HR, CONT
     Route: 015
     Dates: start: 20110820

REACTIONS (4)
  - Pregnancy with contraceptive device [Recovered/Resolved]
  - Drug ineffective [None]
  - Device expulsion [None]
  - Caesarean section [None]
